FAERS Safety Report 6745335-2 (Version None)
Quarter: 2010Q2

REPORT INFORMATION
  Report Type: 
  Country: None (occurrence: None)
  Receive Date: 20100528
  Receipt Date: 20100520
  Transmission Date: 20101027
  Serious: No
  Sender: FDA-Public Use
  Company Number: US-BIOGENIDEC-2010BI017244

PATIENT
  Age: 40 Year
  Sex: Male

DRUGS (2)
  1. TYSABRI [Suspect]
     Indication: MULTIPLE SCLEROSIS
     Route: 042
     Dates: start: 20080610
  2. CLARITIN [Concomitant]
     Indication: PREMEDICATION

REACTIONS (3)
  - ASTHENIA [None]
  - DEPRESSED MOOD [None]
  - INFLUENZA LIKE ILLNESS [None]
